FAERS Safety Report 9326050 (Version 1)
Quarter: 2013Q2

REPORT INFORMATION
  Report Type: Spontaneous
  Country: US (occurrence: None)
  Receive Date: 20130603
  Receipt Date: 20130603
  Transmission Date: 20140414
  Serious: Yes (Other)
  Sender: FDA-Public Use
  Company Number: None

PATIENT
  Age: 57 Year
  Sex: Male
  Weight: 102.51 kg

DRUGS (2)
  1. TRAMADOL [Suspect]
     Indication: SCIATICA
     Dosage: 3
  2. OMEPRAZOLE [Suspect]
     Indication: GASTROOESOPHAGEAL REFLUX DISEASE
     Dosage: 1

REACTIONS (3)
  - Drug ineffective [None]
  - Dyspepsia [None]
  - Suspected counterfeit product [None]
